FAERS Safety Report 9143761 (Version 16)
Quarter: 2014Q1

REPORT INFORMATION
  Report Type: Report from Study
  Country: CA (occurrence: CA)
  Receive Date: 20130306
  Receipt Date: 20140329
  Transmission Date: 20141002
  Serious: Yes (Hospitalization, Other)
  Sender: FDA-Public Use
  Company Number: CA-ROCHE-1177721

PATIENT
  Age: 60 Year
  Sex: Male

DRUGS (4)
  1. ZELBORAF [Suspect]
     Indication: METASTATIC MALIGNANT MELANOMA
     Route: 048
     Dates: start: 201212, end: 201302
  2. ZELBORAF [Suspect]
     Route: 048
     Dates: start: 20130617, end: 201401
  3. WELLBUTRIN [Concomitant]
     Route: 065
  4. ZOPICLONE [Concomitant]
     Route: 065

REACTIONS (16)
  - Colitis ulcerative [Recovered/Resolved]
  - Diarrhoea haemorrhagic [Unknown]
  - Hypertension [Unknown]
  - Rectal haemorrhage [Recovered/Resolved]
  - Stoma site infection [Unknown]
  - Furuncle [Unknown]
  - Impaired healing [Unknown]
  - Merycism [Not Recovered/Not Resolved]
  - Anxiety [Not Recovered/Not Resolved]
  - Hypertension [Not Recovered/Not Resolved]
  - Diarrhoea [Not Recovered/Not Resolved]
  - Acne [Unknown]
  - Weight fluctuation [Not Recovered/Not Resolved]
  - Rectal haemorrhage [Unknown]
  - Rectal discharge [Unknown]
  - Disease progression [Unknown]
